FAERS Safety Report 7705393-5 (Version None)
Quarter: 2011Q3

REPORT INFORMATION
  Report Type: 
  Country: None (occurrence: None)
  Receive Date: 20110824
  Receipt Date: 20110816
  Transmission Date: 20111222
  Serious: Yes (Other)
  Sender: FDA-Public Use
  Company Number: US-US-EMD SERONO, INC.-7007663

PATIENT
  Sex: Female

DRUGS (9)
  1. REBIF [Suspect]
     Indication: MULTIPLE SCLEROSIS
     Route: 058
     Dates: start: 20080826
  2. NEURONTIN [Concomitant]
     Indication: PARAESTHESIA
  3. NEXIUM [Concomitant]
     Indication: GASTROOESOPHAGEAL REFLUX DISEASE
  4. SOLU-MEDROL [Suspect]
     Indication: MULTIPLE SCLEROSIS
     Dates: start: 20080201
  5. CELEXA [Concomitant]
     Indication: DEPRESSION
     Dates: start: 20060101
  6. FLUCONAZOLE [Concomitant]
     Indication: VULVOVAGINAL MYCOTIC INFECTION
  7. NEURONTIN [Concomitant]
     Indication: HYPOAESTHESIA
  8. CLOBETASOL PROPIONATE [Concomitant]
     Indication: VULVOVAGINAL MYCOTIC INFECTION
  9. CLOBETASOL PROPIONATE [Concomitant]
     Indication: LICHEN SCLEROSUS

REACTIONS (8)
  - OESOPHAGEAL CANDIDIASIS [None]
  - ANXIETY [None]
  - SINUSITIS [None]
  - PARAESTHESIA [None]
  - INJECTION SITE PAIN [None]
  - IMMUNOSUPPRESSION [None]
  - INSOMNIA [None]
  - FEELING JITTERY [None]
